FAERS Safety Report 20206635 (Version 2)
Quarter: 2024Q4

REPORT INFORMATION
  Report Type: Spontaneous
  Country: FI (occurrence: FI)
  Receive Date: 20211220
  Receipt Date: 20241210
  Transmission Date: 20250115
  Serious: No
  Sender: ALKEM
  Company Number: FI-ALKEM LABORATORIES LIMITED-FI-ALKEM-2021-06379

PATIENT
  Sex: Female

DRUGS (2)
  1. METFORMIN HYDROCHLORIDE [Suspect]
     Active Substance: METFORMIN HYDROCHLORIDE
     Indication: Polycystic ovarian syndrome
     Dosage: 1000 MG TWO TIMES DAILY (FOR OBESE); NONOBESE SUBJECTS, 500 MG PLUS 1000 MG DAILY
     Route: 065
  2. METFORMIN HYDROCHLORIDE [Suspect]
     Active Substance: METFORMIN HYDROCHLORIDE
     Indication: Anovulatory cycle

REACTIONS (2)
  - Adverse event [Unknown]
  - Exposure during pregnancy [Unknown]
